FAERS Safety Report 19707348 (Version 1)
Quarter: 2021Q3

REPORT INFORMATION
  Report Type: Spontaneous
  Country: US (occurrence: US)
  Receive Date: 20210817
  Receipt Date: 20210817
  Transmission Date: 20211014
  Serious: No
  Sender: FDA-Public Use
  Company Number: US-ASTRAZENECA-2021A665350

PATIENT
  Age: 87 Year
  Sex: Male

DRUGS (2)
  1. ACALABRUTINIB. [Suspect]
     Active Substance: ACALABRUTINIB
     Indication: LIGAMENT RUPTURE
     Route: 048
  2. APIXABAN [Suspect]
     Active Substance: APIXABAN
     Route: 065

REACTIONS (2)
  - Contusion [Recovered/Resolved]
  - Injury [Unknown]
